FAERS Safety Report 7243488-3 (Version None)
Quarter: 2011Q1

REPORT INFORMATION
  Report Type: 
  Country: None (occurrence: None)
  Receive Date: 20110125
  Receipt Date: 20110118
  Transmission Date: 20110831
  Serious: Yes (Death, Other)
  Sender: FDA-Public Use
  Company Number: US-GENZYME-THYM-1002187

PATIENT
  Age: 21 Year
  Sex: Female

DRUGS (7)
  1. THYMOGLOBULIN [Suspect]
     Indication: BONE MARROW CONDITIONING REGIMEN
     Dosage: UNK MG/KG, QD
  2. METHYLPREDNISOLONE [Concomitant]
     Dosage: 1 MG/KG, QD
  3. TOTAL BODY IRRADIATION [Concomitant]
     Indication: BONE MARROW CONDITIONING REGIMEN
  4. CYTARABINE [Concomitant]
     Indication: BONE MARROW CONDITIONING REGIMEN
     Dosage: 3 G/M2, BID
     Route: 042
  5. METHYLPREDNISOLONE [Concomitant]
     Indication: BONE MARROW CONDITIONING REGIMEN
     Dosage: 1 G/M2, BID
  6. CYCLOPHOSPHAMIDE [Concomitant]
     Indication: BONE MARROW CONDITIONING REGIMEN
     Dosage: 45 MG/KG, UNK
  7. METHYLPREDNISOLONE [Concomitant]
     Dosage: UNK

REACTIONS (3)
  - CYTOMEGALOVIRUS TEST POSITIVE [None]
  - MICROSPORIDIA INFECTION [None]
  - ILEUS [None]
